FAERS Safety Report 7340434-9 (Version None)
Quarter: 2011Q1

REPORT INFORMATION
  Report Type: 
  Country: None (occurrence: None)
  Receive Date: 20110309
  Receipt Date: 20110301
  Transmission Date: 20110831
  Serious: Yes (Other)
  Sender: FDA-Public Use
  Company Number: JP-JNJFOC-20110302562

PATIENT
  Age: 3 Decade
  Sex: Male

DRUGS (3)
  1. CALONAL [Concomitant]
     Route: 065
  2. LEVOFLOXACIN [Suspect]
     Indication: INFECTION
     Route: 065
  3. MUCOSTA [Concomitant]
     Route: 065

REACTIONS (1)
  - SHOCK [None]
